FAERS Safety Report 4955338-6 (Version None)
Quarter: 2006Q1

REPORT INFORMATION
  Report Type: 
  Country: None (occurrence: None)
  Receive Date: 20060328
  Receipt Date: 20060316
  Transmission Date: 20060701
  Serious: Yes (Other)
  Sender: FDA-Public Use
  Company Number: DE-BRISTOL-MYERS SQUIBB COMPANY-13318126

PATIENT
  Sex: Male

DRUGS (3)
  1. REYATAZ [Suspect]
     Indication: HIV INFECTION
     Dates: start: 20060120, end: 20060101
  2. RITONAVIR [Suspect]
     Indication: HIV INFECTION
     Dates: start: 20060120, end: 20060101
  3. TRUVADA [Suspect]
     Indication: HIV INFECTION
     Dates: start: 20060120, end: 20060101

REACTIONS (4)
  - BLOOD TRIGLYCERIDES INCREASED [None]
  - HEPATIC STEATOSIS [None]
  - HEPATITIS [None]
  - HYPERLIPIDAEMIA [None]
